FAERS Safety Report 17852188 (Version 2)
Quarter: 2020Q2

REPORT INFORMATION
  Report Type: Spontaneous
  Country: US (occurrence: US)
  Receive Date: 20200602
  Receipt Date: 20200618
  Transmission Date: 20200714
  Serious: Yes (Life-Threatening, Hospitalization)
  Sender: FDA-Public Use
  Company Number: US-TEVA-2020-US-1242234

PATIENT
  Age: 29 Year
  Sex: Male

DRUGS (1)
  1. VALPROATE [Suspect]
     Active Substance: VALPROIC ACID
     Route: 048

REACTIONS (4)
  - Overdose [Unknown]
  - Coma [Recovering/Resolving]
  - Delirium [Recovering/Resolving]
  - Hyperammonaemia [Unknown]
